FAERS Safety Report 23431681 (Version 9)
Quarter: 2025Q3

REPORT INFORMATION
  Report Type: Report from Study
  Country: CO (occurrence: CO)
  Receive Date: 20240123
  Receipt Date: 20250922
  Transmission Date: 20251021
  Serious: Yes (Hospitalization, Other)
  Sender: TAKEDA
  Company Number: CO-TAKEDA-2023TUS089496

PATIENT
  Age: 35 Year
  Sex: Female
  Weight: 59 kg

DRUGS (2)
  1. VEDOLIZUMAB [Suspect]
     Active Substance: VEDOLIZUMAB
     Indication: Crohn^s disease
  2. VEDOLIZUMAB [Suspect]
     Active Substance: VEDOLIZUMAB
     Dosage: 300 MILLIGRAM, Q4WEEKS

REACTIONS (20)
  - Intestinal ulcer [Unknown]
  - Iron deficiency anaemia [Unknown]
  - Small intestinal stenosis [Unknown]
  - Systemic lupus erythematosus [Unknown]
  - Opportunistic infection [Unknown]
  - Lymphadenopathy [Unknown]
  - Weight increased [Unknown]
  - Pulmonary mass [Unknown]
  - Cardiomegaly [Unknown]
  - Anal fistula [Unknown]
  - Diarrhoea [Unknown]
  - Vasculitis [Unknown]
  - Inappropriate schedule of product administration [Unknown]
  - Drug ineffective [Unknown]
  - Product dose omission issue [Unknown]
  - Dizziness [Recovering/Resolving]
  - Abdominal distension [Unknown]
  - Anal fissure [Unknown]
  - Arthralgia [Unknown]
  - Headache [Recovering/Resolving]

NARRATIVE: CASE EVENT DATE: 20230909
